FAERS Safety Report 24227732 (Version 1)
Quarter: 2024Q3

REPORT INFORMATION
  Report Type: Spontaneous
  Country: US (occurrence: US)
  Receive Date: 20240820
  Receipt Date: 20240820
  Transmission Date: 20241017
  Serious: No
  Sender: SANOFI AVENTIS
  Company Number: US-SA-SAC20240812000425

PATIENT
  Age: 36 Year
  Sex: Male

DRUGS (2)
  1. DUPIXENT [Suspect]
     Active Substance: DUPILUMAB
     Indication: Dermatitis atopic
     Dosage: 300 MG, QOW
     Route: 058
     Dates: end: 202312
  2. PROTOPIC [Suspect]
     Active Substance: TACROLIMUS
     Dosage: UNK

REACTIONS (4)
  - Rash pruritic [Not Recovered/Not Resolved]
  - Skin irritation [Not Recovered/Not Resolved]
  - Rash vesicular [Not Recovered/Not Resolved]
  - Sleep disorder due to a general medical condition [Not Recovered/Not Resolved]
